FAERS Safety Report 9004477 (Version 1)
Quarter: 2013Q1

REPORT INFORMATION
  Report Type: Spontaneous
  Country: US (occurrence: None)
  Receive Date: 20130103
  Receipt Date: 20130103
  Transmission Date: 20140127
  Serious: Yes (Other)
  Sender: FDA-Public Use
  Company Number: None

PATIENT
  Age: 62 Year
  Sex: Male
  Weight: 81.65 kg

DRUGS (1)
  1. MOVIPREP SOL 1055 (PEG-3350) [Suspect]
     Indication: COLONOSCOPY
     Dosage: A AND B COURSES 1 COURSE / 12 HRS. PO
     Route: 048
     Dates: start: 20121205, end: 20121206

REACTIONS (1)
  - Extrasystoles [None]
